FAERS Safety Report 8098242-X (Version None)
Quarter: 2012Q1

REPORT INFORMATION
  Report Type: 
  Country: None (occurrence: None)
  Receive Date: 20120128
  Receipt Date: 20110719
  Transmission Date: 20120608
  Serious: No
  Sender: FDA-Public Use
  Company Number: US-ABBOTT-11P-163-0840278-00

PATIENT
  Age: 58 Year
  Sex: Female

DRUGS (11)
  1. MORPHINE [Concomitant]
     Indication: PAIN
  2. METHOCARBAMOL [Concomitant]
     Indication: PAIN
     Dosage: AT BEDTIME
  3. METHOTREXATE [Concomitant]
     Indication: PRODUCT USED FOR UNKNOWN INDICATION
  4. FOSAMAX [Concomitant]
     Indication: PRODUCT USED FOR UNKNOWN INDICATION
  5. GABAPENTIN [Concomitant]
     Dosage: 300MG 3 TIMES A DAY AND 2 AT BEDTIME
  6. HYDROXYZINE [Concomitant]
     Indication: PAIN
  7. VICODIN [Concomitant]
     Indication: PAIN
     Dosage: 10/325MG 1-2 EVERY 6 HOURS
  8. HUMIRA [Suspect]
     Indication: RHEUMATOID ARTHRITIS
     Dates: start: 20110201
  9. NAPROSYN [Concomitant]
     Indication: PAIN
  10. GABAPENTIN [Concomitant]
     Indication: PAIN
  11. PREDNISONE TAB [Concomitant]
     Indication: PRODUCT USED FOR UNKNOWN INDICATION

REACTIONS (3)
  - MUSCLE TWITCHING [None]
  - NECK PAIN [None]
  - MYALGIA [None]
